FAERS Safety Report 19782803 (Version 1)
Quarter: 2021Q3

REPORT INFORMATION
  Report Type: Spontaneous
  Country: US (occurrence: US)
  Receive Date: 20210903
  Receipt Date: 20210903
  Transmission Date: 20211014
  Serious: Yes (Hospitalization, Other)
  Sender: FDA-Public Use
  Company Number: US-AUROBINDO-AUR-APL-2021-036608

PATIENT
  Age: 60 Year
  Sex: Male

DRUGS (24)
  1. METHADONE [Suspect]
     Active Substance: METHADONE HYDROCHLORIDE
     Indication: DRUG USE DISORDER
     Dosage: 75 MILLIGRAM
     Route: 048
  2. NALOXONE HYDROCHLORIDE. [Suspect]
     Active Substance: NALOXONE HYDROCHLORIDE
     Dosage: 0.5 MILLIGRAM, TWO TIMES A DAY
     Route: 060
  3. NALOXONE HYDROCHLORIDE. [Suspect]
     Active Substance: NALOXONE HYDROCHLORIDE
     Dosage: 3 MILLIGRAM, ONCE A DAY
     Route: 060
  4. BUPRENORPHINE. [Suspect]
     Active Substance: BUPRENORPHINE
     Dosage: 0.5 MILLIGRAM, 3 TIMES A DAY
     Route: 060
  5. NALOXONE HYDROCHLORIDE. [Suspect]
     Active Substance: NALOXONE HYDROCHLORIDE
     Dosage: 0.125 MILLIGRAM, 3 TIMES A DAY
     Route: 060
  6. NALOXONE HYDROCHLORIDE. [Suspect]
     Active Substance: NALOXONE HYDROCHLORIDE
     Dosage: 4 MILLIGRAM, ONCE A DAY
     Route: 060
  7. NALOXONE HYDROCHLORIDE. [Suspect]
     Active Substance: NALOXONE HYDROCHLORIDE
     Dosage: 0.5 MILLIGRAM, FOUR TIMES/DAY
     Route: 060
  8. HEROIN [Suspect]
     Active Substance: DIAMORPHINE
     Indication: BACK INJURY
     Dosage: UNK (0.03?0.05 G PER DAY)
  9. OXYCODONE [Concomitant]
     Active Substance: OXYCODONE
     Indication: BACK INJURY
     Dosage: UNK
     Route: 065
  10. NALOXONE HYDROCHLORIDE. [Suspect]
     Active Substance: NALOXONE HYDROCHLORIDE
     Dosage: 0.5 MILLIGRAM, 3 TIMES A DAY
     Route: 060
  11. NALOXONE HYDROCHLORIDE. [Suspect]
     Active Substance: NALOXONE HYDROCHLORIDE
     Dosage: 1 MILLIGRAM, 3 TIMES A DAY
     Route: 060
  12. NALOXONE HYDROCHLORIDE. [Suspect]
     Active Substance: NALOXONE HYDROCHLORIDE
     Dosage: 1 MILLIGRAM
     Route: 060
  13. BUPRENORPHINE. [Suspect]
     Active Substance: BUPRENORPHINE
     Indication: DRUG USE DISORDER
     Dosage: 5 MICROGRAM/HOUR
  14. BUPRENORPHINE. [Suspect]
     Active Substance: BUPRENORPHINE
     Dosage: 1 MILLIGRAM, TWO TIMES A DAY
     Route: 060
  15. BUPRENORPHINE. [Suspect]
     Active Substance: BUPRENORPHINE
     Dosage: 2 MILLIGRAM, FOUR TIMES/DAY
     Route: 060
  16. BUPRENORPHINE. [Suspect]
     Active Substance: BUPRENORPHINE
     Dosage: 4 MILLIGRAM(SINGLE DOSE)
     Route: 060
  17. NALOXONE HYDROCHLORIDE. [Suspect]
     Active Substance: NALOXONE HYDROCHLORIDE
     Dosage: 0.25 MILLIGRAM, TWO TIMES A DAY
     Route: 060
  18. BUPRENORPHINE. [Suspect]
     Active Substance: BUPRENORPHINE
     Dosage: 12 MILLIGRAM, ONCE A DAY
     Route: 060
  19. NALOXONE HYDROCHLORIDE. [Suspect]
     Active Substance: NALOXONE HYDROCHLORIDE
     Indication: DRUG USE DISORDER
     Dosage: 0.125 MILLIGRAM, TWO TIMES A DAY
     Route: 060
  20. BUPRENORPHINE. [Suspect]
     Active Substance: BUPRENORPHINE
     Dosage: 0.5 MILLIGRAM, TWO TIMES A DAY
     Route: 060
  21. BUPRENORPHINE. [Suspect]
     Active Substance: BUPRENORPHINE
     Dosage: 2 MILLIGRAM, 3 TIMES A DAY
     Route: 060
  22. BUPRENORPHINE. [Suspect]
     Active Substance: BUPRENORPHINE
     Dosage: 16 MILLIGRAM, ONCE A DAY
     Route: 060
  23. BUPRENORPHINE. [Suspect]
     Active Substance: BUPRENORPHINE
     Dosage: 2 MILLIGRAM, TWO TIMES A DAY
     Route: 060
  24. BUPRENORPHINE. [Suspect]
     Active Substance: BUPRENORPHINE
     Dosage: 4 MILLIGRAM, 3 TIMES A DAY
     Route: 060

REACTIONS (7)
  - Endocrine disorder [Unknown]
  - Libido decreased [Unknown]
  - Withdrawal syndrome [Unknown]
  - Erectile dysfunction [Unknown]
  - Gynaecomastia [Unknown]
  - Off label use [Unknown]
  - Asthenia [Unknown]
